FAERS Safety Report 10058032 (Version 1)
Quarter: 2014Q2

REPORT INFORMATION
  Report Type: Spontaneous
  Country: US (occurrence: None)
  Receive Date: 20140403
  Receipt Date: 20140403
  Transmission Date: 20141212
  Serious: Yes (Life-Threatening, Disabling, Other)
  Sender: FDA-Public Use
  Company Number: None

PATIENT
  Age: 50 Year
  Sex: Male
  Weight: 93.44 kg

DRUGS (9)
  1. JANUVIA [Suspect]
     Indication: DIABETES MELLITUS INADEQUATE CONTROL
     Dosage: 1 PILL
     Route: 048
     Dates: start: 20131018, end: 20140314
  2. JANUVIA [Suspect]
     Indication: GLYCOSYLATED HAEMOGLOBIN INCREASED
     Dosage: 1 PILL
     Route: 048
     Dates: start: 20131018, end: 20140314
  3. LISINOPRIL-HCTZ [Concomitant]
  4. L-LYSINE [Concomitant]
  5. L-ARGANINE [Concomitant]
  6. VITAMIN E [Concomitant]
  7. VITAMIN C [Concomitant]
  8. COLESTEROF [Concomitant]
  9. B COMPLEX [Concomitant]

REACTIONS (15)
  - Pain in extremity [None]
  - Gait disturbance [None]
  - Fatigue [None]
  - Sleep disorder [None]
  - Loss of employment [None]
  - Hypersomnia [None]
  - Judgement impaired [None]
  - Economic problem [None]
  - Palpitations [None]
  - Cough [None]
  - Feeling abnormal [None]
  - Arthralgia [None]
  - Myalgia [None]
  - Pancreatic disorder [None]
  - Condition aggravated [None]
